FAERS Safety Report 6176957-8 (Version None)
Quarter: 2009Q2

REPORT INFORMATION
  Report Type: 
  Country: None (occurrence: None)
  Receive Date: 20090501
  Receipt Date: 20090127
  Transmission Date: 20091009
  Serious: Yes (Hospitalization, Other)
  Sender: FDA-Public Use
  Company Number: US-ALEXION-A200900029

PATIENT
  Sex: Male

DRUGS (8)
  1. SOLIRIS [Suspect]
     Indication: PAROXYSMAL NOCTURNAL HAEMOGLOBINURIA
     Dosage: 900 MG, Q2W
     Route: 042
  2. SOLIRIS [Suspect]
     Dosage: 900 MG, Q12D
     Route: 042
  3. SINGULAIR [Concomitant]
     Dosage: UNK
     Route: 048
  4. FOLIC ACID [Concomitant]
     Dosage: UNK
     Route: 048
  5. PRILOSEC [Concomitant]
     Dosage: UNK
     Route: 048
  6. ZANTAC                             /00550802/ [Concomitant]
     Dosage: UNK
     Route: 048
  7. VITAMIN B-12 [Concomitant]
     Dosage: UNK
     Route: 048
  8. CALCITRATE                         /00751501/ [Concomitant]
     Dosage: UNK
     Route: 048

REACTIONS (4)
  - ASTHENIA [None]
  - BLOOD COUNT ABNORMAL [None]
  - BLOOD POTASSIUM DECREASED [None]
  - HAEMOLYSIS [None]
